FAERS Safety Report 15151351 (Version 12)
Quarter: 2019Q1

REPORT INFORMATION
  Report Type: Report from Study
  Country: US (occurrence: US)
  Receive Date: 20180716
  Receipt Date: 20190204
  Transmission Date: 20190417
  Serious: Yes (Death, Hospitalization, Other)
  Sender: FDA-Public Use
  Company Number: US-ACTELION-A-US2018-175110

PATIENT
  Age: 58 Year
  Sex: Female
  Weight: 49.89 kg

DRUGS (7)
  1. ADCIRCA [Concomitant]
     Active Substance: TADALAFIL
  2. VELETRI [Suspect]
     Active Substance: EPOPROSTENOL
     Dosage: 15 NG/KG, PER MIN
     Route: 042
  3. OPSUMIT [Suspect]
     Active Substance: MACITENTAN
     Indication: PULMONARY ARTERIAL HYPERTENSION
     Dosage: UNK
     Route: 048
     Dates: start: 20170621
  4. VELETRI [Suspect]
     Active Substance: EPOPROSTENOL
     Indication: PULMONARY ARTERIAL HYPERTENSION
     Dosage: 24 NG/KG, PER MIN
     Route: 042
  5. TYVASO [Suspect]
     Active Substance: TREPROSTINIL
     Indication: PULMONARY ARTERIAL HYPERTENSION
     Dosage: 18-54 MICROGRAMS, QID
     Route: 055
     Dates: start: 20180123
  6. DILTIAZEM. [Concomitant]
     Active Substance: DILTIAZEM
  7. ELIQUIS [Concomitant]
     Active Substance: APIXABAN

REACTIONS (28)
  - Fluid retention [Unknown]
  - Nausea [Unknown]
  - Decreased appetite [Unknown]
  - Death [Fatal]
  - Therapy change [Unknown]
  - Weight increased [Unknown]
  - Diarrhoea [Unknown]
  - Headache [Unknown]
  - Pain [Unknown]
  - Therapy non-responder [Unknown]
  - Catheter site vesicles [Not Recovered/Not Resolved]
  - Hospitalisation [Unknown]
  - Complication associated with device [Unknown]
  - Vomiting [Unknown]
  - Pain in jaw [Unknown]
  - Physical examination abnormal [Unknown]
  - Malaise [Unknown]
  - Back pain [Unknown]
  - Hypotension [Unknown]
  - Overdose [Unknown]
  - Dehydration [Unknown]
  - Paracentesis [Unknown]
  - Dyspnoea [Unknown]
  - Arthralgia [Unknown]
  - Tearfulness [Unknown]
  - Fatigue [Unknown]
  - Asthenia [Unknown]
  - Weight decreased [Unknown]

NARRATIVE: CASE EVENT DATE: 20181204
